FAERS Safety Report 7345048-2 (Version None)
Quarter: 2011Q1

REPORT INFORMATION
  Report Type: 
  Country: None (occurrence: None)
  Receive Date: 20110310
  Receipt Date: 20110228
  Transmission Date: 20110831
  Serious: Yes (Hospitalization, Other)
  Sender: FDA-Public Use
  Company Number: US-ELI_LILLY_AND_COMPANY-US201103000460

PATIENT
  Sex: Female

DRUGS (1)
  1. FORTEO [Suspect]
     Indication: RHEUMATOID ARTHRITIS
     Dosage: 20 UG, DAILY (1/D)
     Route: 065
     Dates: start: 20090801

REACTIONS (3)
  - SPINAL COMPRESSION FRACTURE [None]
  - RENAL MASS [None]
  - OFF LABEL USE [None]
